FAERS Safety Report 25889551 (Version 1)
Quarter: 2025Q4

REPORT INFORMATION
  Report Type: Spontaneous
  Country: US (occurrence: US)
  Receive Date: 20251007
  Receipt Date: 20251007
  Transmission Date: 20260118
  Serious: Yes (Other)
  Sender: CHATTEM
  Company Number: US-OPELLA-2025OHG029061

PATIENT
  Sex: Female

DRUGS (1)
  1. ICY HOT [Suspect]
     Active Substance: LIDOCAINE\MENTHOL
     Indication: Product used for unknown indication
     Route: 065

REACTIONS (3)
  - Product contamination microbial [Unknown]
  - Poor quality product administered [Unknown]
  - No adverse event [Unknown]
